FAERS Safety Report 8207243-X (Version None)
Quarter: 2012Q1

REPORT INFORMATION
  Report Type: 
  Country: None (occurrence: None)
  Receive Date: 20120314
  Receipt Date: 20120309
  Transmission Date: 20120608
  Serious: No
  Sender: FDA-Public Use
  Company Number: US-PFIZER INC-2012063599

PATIENT
  Sex: Female
  Weight: 76.6 kg

DRUGS (4)
  1. PRISTIQ [Suspect]
     Indication: ANXIETY
  2. PRISTIQ [Suspect]
     Indication: OBSESSIVE-COMPULSIVE DISORDER
     Dosage: 50 MG, 1X/DAY
     Route: 048
  3. XANAX [Concomitant]
     Indication: ANXIETY
     Dosage: UNK
  4. PRISTIQ [Suspect]
     Indication: DEPRESSION
     Dosage: 50 MG, 1X/DAY
     Route: 048
     Dates: start: 20111101

REACTIONS (2)
  - FATIGUE [None]
  - DIZZINESS [None]
